FAERS Safety Report 9658075 (Version 1)
Quarter: 2013Q4

REPORT INFORMATION
  Report Type: Spontaneous
  Country: US (occurrence: US)
  Receive Date: 20131030
  Receipt Date: 20131030
  Transmission Date: 20140711
  Serious: Yes (Other)
  Sender: FDA-Public Use
  Company Number: ALCN2013US005357

PATIENT
  Age: 80 Year
  Sex: Male

DRUGS (6)
  1. AZOPT [Suspect]
     Indication: VISUAL ACUITY REDUCED
     Dosage: 2 GTT, BID
     Route: 047
     Dates: start: 20130916, end: 20130927
  2. TRAVATAN Z [Concomitant]
     Route: 047
  3. DAPSONE [Concomitant]
     Dosage: 1 DF, UNK
     Route: 048
  4. METOPROLOL [Concomitant]
     Indication: BLOOD PRESSURE INCREASED
     Dosage: 1 DF, UNK
     Route: 048
  5. ANASTROZOLE [Concomitant]
     Dosage: 1 UNK, UNK
     Route: 048
  6. ICAPS [Concomitant]
     Dosage: 1 DF, UNK
     Route: 048

REACTIONS (11)
  - Haemoptysis [Recovered/Resolved]
  - Blood pressure decreased [Recovered/Resolved]
  - Headache [Recovered/Resolved]
  - Balance disorder [Recovered/Resolved]
  - Chest discomfort [Recovered/Resolved]
  - Dyspnoea [Recovered/Resolved]
  - Decreased appetite [Recovered/Resolved]
  - Somnolence [Recovered/Resolved]
  - Dry throat [Recovered/Resolved]
  - Dizziness [Recovered/Resolved]
  - Dysgeusia [Recovered/Resolved]
